FAERS Safety Report 7552928-1 (Version None)
Quarter: 2011Q2

REPORT INFORMATION
  Report Type: 
  Country: None (occurrence: None)
  Receive Date: 20110616
  Receipt Date: 20101215
  Transmission Date: 20111010
  Serious: No
  Sender: FDA-Public Use
  Company Number: US-ASTRAZENECA-2010SE22407

PATIENT
  Sex: Female

DRUGS (2)
  1. FASLODEX [Suspect]
     Indication: BREAST CANCER METASTATIC
     Route: 030
     Dates: start: 20100201, end: 20100201
  2. FASLODEX [Suspect]
     Route: 030
     Dates: start: 20100301

REACTIONS (3)
  - BACK PAIN [None]
  - BONE PAIN [None]
  - BREAST PAIN [None]
